FAERS Safety Report 7827390-1 (Version None)
Quarter: 2011Q4

REPORT INFORMATION
  Report Type: 
  Country: None (occurrence: None)
  Receive Date: 20111020
  Receipt Date: 20111011
  Transmission Date: 20120403
  Serious: Yes (Death, Hospitalization, Other)
  Sender: FDA-Public Use
  Company Number: JP-JNJFOC-20110709362

PATIENT
  Sex: Male
  Weight: 93 kg

DRUGS (13)
  1. ARTANE [Concomitant]
     Dosage: 2 MG-4 MG
     Route: 048
     Dates: start: 20061221, end: 20110706
  2. DESYREL [Concomitant]
     Dosage: 25MG-50MG
     Route: 048
     Dates: start: 20100715, end: 20110706
  3. RISPERDAL [Suspect]
     Route: 048
     Dates: start: 20110614, end: 20110707
  4. INVEGA [Suspect]
     Route: 048
     Dates: start: 20110414, end: 20110420
  5. RISPERDAL [Suspect]
     Route: 048
     Dates: start: 20110421, end: 20110606
  6. RISPERDAL [Suspect]
     Route: 048
     Dates: start: 20110414, end: 20110420
  7. INVEGA [Suspect]
     Indication: SCHIZOPHRENIA
     Route: 048
     Dates: start: 20110426, end: 20110707
  8. RISPERDAL [Suspect]
     Indication: SCHIZOPHRENIA
     Dosage: 1MG-10MG
     Route: 048
     Dates: start: 20050822, end: 20110413
  9. RISPERDAL [Suspect]
     Route: 048
     Dates: start: 20110607, end: 20110613
  10. RISPERDAL [Suspect]
     Dosage: TWO DOSES OF 1ML
     Route: 048
     Dates: start: 20110707, end: 20110707
  11. INVEGA [Suspect]
     Route: 048
     Dates: start: 20110421, end: 20110426
  12. HALCION [Concomitant]
     Dosage: 0.25MG-0.5MG
     Route: 048
     Dates: start: 20050809, end: 20110706
  13. ROHYPNOL [Concomitant]
     Dosage: 2MG-4MG
     Route: 048
     Dates: start: 20060930, end: 20110706

REACTIONS (4)
  - CARDIAC ARREST [None]
  - RESTLESSNESS [None]
  - INFLUENZA [None]
  - SCHIZOPHRENIA [None]
